FAERS Safety Report 24694012 (Version 1)
Quarter: 2024Q4

REPORT INFORMATION
  Report Type: Spontaneous
  Country: US (occurrence: US)
  Receive Date: 20241204
  Receipt Date: 20241204
  Transmission Date: 20250114
  Serious: Yes (Death)
  Sender: ROCHE
  Company Number: US-ROCHE-10000148470

PATIENT
  Age: 56 Year
  Sex: Male

DRUGS (1)
  1. AVASTIN [Suspect]
     Active Substance: BEVACIZUMAB
     Indication: Colon cancer
     Dosage: STRENGTH: 25 MG/ML.
     Route: 042
     Dates: start: 202305

REACTIONS (1)
  - Death [Fatal]

NARRATIVE: CASE EVENT DATE: 20241114
